FAERS Safety Report 14220479 (Version 1)
Quarter: 2017Q4

REPORT INFORMATION
  Report Type: Report from Study
  Country: IT (occurrence: IT)
  Receive Date: 20171124
  Receipt Date: 20171124
  Transmission Date: 20180321
  Serious: Yes (Other)
  Sender: FDA-Public Use
  Company Number: IT-GLAXOSMITHKLINE-IT2017GSK178832

PATIENT
  Age: 62 Year
  Sex: Female

DRUGS (2)
  1. EVOTAZ [Concomitant]
     Active Substance: ATAZANAVIR SULFATE\COBICISTAT
     Indication: PRODUCT USED FOR UNKNOWN INDICATION
     Dosage: UNK
  2. LAMIVUDINE. [Suspect]
     Active Substance: LAMIVUDINE
     Indication: HIV INFECTION
     Dosage: UNK

REACTIONS (1)
  - Bone marrow toxicity [Unknown]
